FAERS Safety Report 7244521-5 (Version None)
Quarter: 2011Q1

REPORT INFORMATION
  Report Type: 
  Country: None (occurrence: None)
  Receive Date: 20110125
  Receipt Date: 20110118
  Transmission Date: 20110831
  Serious: Yes (Other)
  Sender: FDA-Public Use
  Company Number: GB-ELI_LILLY_AND_COMPANY-GB201101004364

PATIENT
  Age: 53 Year
  Sex: Female

DRUGS (3)
  1. INSULIN [Concomitant]
  2. BYETTA [Suspect]
     Dosage: 10 UG, UNK
     Route: 058
  3. BYETTA [Suspect]
     Dosage: 5 UG, UNK
     Route: 058
     Dates: start: 20080101

REACTIONS (7)
  - ABDOMINAL PAIN UPPER [None]
  - BLOOD INSULIN DECREASED [None]
  - BACK PAIN [None]
  - ENZYME ABNORMALITY [None]
  - OFF LABEL USE [None]
  - FLANK PAIN [None]
  - COELIAC DISEASE [None]
